FAERS Safety Report 22145409 (Version 1)
Quarter: 2023Q1

REPORT INFORMATION
  Report Type: Spontaneous
  Country: ME (occurrence: ME)
  Receive Date: 20230328
  Receipt Date: 20230328
  Transmission Date: 20230418
  Serious: Yes (Other)
  Sender: FDA-Public Use
  Company Number: ME-JNJFOC-20230358768

PATIENT
  Age: 7 Decade
  Sex: Male

DRUGS (1)
  1. REMICADE [Suspect]
     Active Substance: INFLIXIMAB
     Indication: Product used for unknown indication
     Dosage: 5 AMPOULES
     Route: 041
     Dates: start: 20200120

REACTIONS (1)
  - Laryngeal cancer [Unknown]

NARRATIVE: CASE EVENT DATE: 20230101
